FAERS Safety Report 17458925 (Version 1)
Quarter: 2020Q1

REPORT INFORMATION
  Report Type: Spontaneous
  Country: US (occurrence: US)
  Receive Date: 20200225
  Receipt Date: 20200225
  Transmission Date: 20200409
  Serious: No
  Sender: FDA-Public Use
  Company Number: US-BAUSCH-BL-2020-004344

PATIENT
  Age: 21 Year
  Sex: Male

DRUGS (1)
  1. OPCON-A [Suspect]
     Active Substance: NAPHAZOLINE HYDROCHLORIDE\PHENIRAMINE MALEATE
     Indication: EYE LUBRICATION THERAPY
     Dosage: 4 GTT SINGLE IN RIGHT EYE
     Route: 047
     Dates: start: 20200206, end: 20200206

REACTIONS (2)
  - Wrong product administered [Unknown]
  - Mydriasis [Not Recovered/Not Resolved]

NARRATIVE: CASE EVENT DATE: 20200206
